FAERS Safety Report 4367041-4 (Version None)
Quarter: 2004Q2

REPORT INFORMATION
  Report Type: 
  Country: None (occurrence: None)
  Receive Date: 20040527
  Receipt Date: 20040527
  Transmission Date: 20050107
  Serious: No
  Sender: FDA-Public Use
  Company Number: None

PATIENT
  Age: 19 Year
  Sex: Female
  Weight: 63.5036 kg

DRUGS (3)
  1. TRI-LEVLEN 28 [Suspect]
     Indication: CONTRACEPTION
     Dosage: ONE TAB PO QD [2 WEEKS PRIOR TO EVENT]
     Route: 048
  2. ORTHO TRI-CYCLEN [Suspect]
     Indication: CONTRACEPTION
     Dosage: ONE TAB PO QD  [2 WEEKS PRIOR TO EVENT]
     Route: 048
  3. PAXIL [Concomitant]

REACTIONS (1)
  - DEEP VEIN THROMBOSIS [None]
